FAERS Safety Report 20037672 (Version 4)
Quarter: 2022Q2

REPORT INFORMATION
  Report Type: Report from Study
  Country: US (occurrence: None)
  Receive Date: 20211105
  Receipt Date: 20220519
  Transmission Date: 20220721
  Serious: Yes (Hospitalization)
  Sender: FDA-Public Use
  Company Number: US-ROCHE-2945935

PATIENT
  Age: 74 Year
  Sex: Male
  Weight: 79 kg

DRUGS (12)
  1. TIRAGOLUMAB [Suspect]
     Active Substance: TIRAGOLUMAB
     Indication: Metastatic neoplasm
     Dosage: ON 27/SEP/2021 FROM 11: 10 AM TO 11: 40 AM MOST RECENT DOSE (600 MG) WAS ADMINISTERED
     Route: 042
     Dates: start: 20210317
  2. ATEZOLIZUMAB [Suspect]
     Active Substance: ATEZOLIZUMAB
     Indication: Metastatic neoplasm
     Dosage: ON 27/SEP/2021 FROM 12: 10 PM TO 12: 40 PM MOST RECENT DOSE (1680 MG) WAS ADMINISTERED
     Route: 042
     Dates: start: 20210317
  3. IBUPROFEN [Concomitant]
     Active Substance: IBUPROFEN
     Indication: Pain
     Route: 048
     Dates: start: 20190401
  4. CIALIS [Concomitant]
     Active Substance: TADALAFIL
     Indication: Prostatomegaly
     Route: 048
     Dates: start: 20140701
  5. DOCUSATE SODIUM [Concomitant]
     Active Substance: DOCUSATE SODIUM
     Route: 048
     Dates: start: 20200601
  6. ONDANSETRON [Concomitant]
     Active Substance: ONDANSETRON
     Indication: Nausea
     Route: 048
     Dates: start: 20200924
  7. ONDANSETRON [Concomitant]
     Active Substance: ONDANSETRON
     Indication: Vomiting
  8. LEVOTHYROXINE [Concomitant]
     Active Substance: LEVOTHYROXINE
     Indication: Hypothyroidism
     Route: 048
     Dates: start: 20201109
  9. INSULIN GLARGINE [Concomitant]
     Active Substance: INSULIN GLARGINE
     Indication: Hyperglycaemia
     Dosage: 100 U
     Route: 050
     Dates: start: 20200629
  10. SENNA TABS [Concomitant]
     Active Substance: SENNOSIDES A AND B
     Indication: Constipation
     Route: 048
     Dates: start: 20200601
  11. INSULIN LISPRO [Concomitant]
     Active Substance: INSULIN LISPRO
     Indication: Diabetes mellitus
     Dosage: 100 U
     Dates: start: 20200605
  12. ABRAXANE [Concomitant]
     Active Substance: PACLITAXEL
     Indication: Neoplasm malignant
     Dates: start: 20211115

REACTIONS (2)
  - Adrenal insufficiency [Not Recovered/Not Resolved]
  - Hyponatraemia [Recovered/Resolved]

NARRATIVE: CASE EVENT DATE: 20211025
